FAERS Safety Report 24618868 (Version 1)
Quarter: 2024Q4

REPORT INFORMATION
  Report Type: Spontaneous
  Country: US (occurrence: US)
  Receive Date: 20241114
  Receipt Date: 20241114
  Transmission Date: 20250115
  Serious: Yes (Death, Life-Threatening, Other)
  Sender: PFIZER
  Company Number: US-PFIZER INC-PV202400145959

PATIENT
  Age: 68 Year
  Sex: Female

DRUGS (11)
  1. HEPARIN SODIUM [Suspect]
     Active Substance: HEPARIN SODIUM
  2. INSULIN NOS [Suspect]
     Active Substance: INSULIN NOS
     Dosage: 100 TO 200 U OF REGULAR INSULIN ON AT LEAST ONE OCCASION.
  3. LABETALOL [Concomitant]
     Active Substance: LABETALOL
     Indication: Hypertension
     Dosage: UNK, 8.15 A.M
     Route: 042
  4. LABETALOL [Concomitant]
     Active Substance: LABETALOL
     Dosage: 5 MG, 12:45 P.M
     Route: 042
  5. LORAZEPAM [Concomitant]
     Active Substance: LORAZEPAM
     Indication: Seizure
     Dosage: 1 MG, 8:20 A.M
     Route: 042
  6. LORAZEPAM [Concomitant]
     Active Substance: LORAZEPAM
     Dosage: 1 MG, 8:55 A.M
     Route: 042
  7. MIDAZOLAM [Concomitant]
     Active Substance: MIDAZOLAM
     Indication: Seizure
     Dosage: 1 MG, 9:05 A.M
     Route: 042
  8. MIDAZOLAM [Concomitant]
     Active Substance: MIDAZOLAM
     Dosage: 1 MG, 9:20 A.M
     Route: 042
  9. MIDAZOLAM [Concomitant]
     Active Substance: MIDAZOLAM
     Dosage: 2 MG, 9:45 A.M.
     Route: 042
  10. CHLORPROMAZINE [Concomitant]
     Active Substance: CHLORPROMAZINE
     Dosage: 10 MG, 9:45 A.M.
     Route: 042
  11. MORPHINE HYDROCHLORIDE [Concomitant]
     Active Substance: MORPHINE HYDROCHLORIDE
     Dosage: 6 MG, 9:45 A.M.
     Route: 042

REACTIONS (2)
  - Wrong product administered [Fatal]
  - Hypoglycaemia [Fatal]
